FAERS Safety Report 9490356 (Version 1)
Quarter: 2013Q3

REPORT INFORMATION
  Report Type: Report from Study
  Country: CN (occurrence: CN)
  Receive Date: 20130830
  Receipt Date: 20130830
  Transmission Date: 20140515
  Serious: Yes (Other)
  Sender: FDA-Public Use
  Company Number: CN-ROCHE-1268163

PATIENT
  Sex: 0

DRUGS (3)
  1. CAPECITABINE [Suspect]
     Indication: RECTAL CANCER
     Dosage: D1-D14,21 DAYS AS A CYCLE
     Route: 048
  2. ENDOSTAR [Suspect]
     Indication: RECTAL CANCER
     Dosage: 15MG,D1-D14,21 DAYS AS A CYCLE
     Route: 041
  3. OXALIPLATIN [Suspect]
     Indication: RECTAL CANCER
     Dosage: D1, 21 DAYS AS A CYCLE
     Route: 042

REACTIONS (3)
  - White blood cell count decreased [Recovered/Resolved]
  - Neurotoxicity [Recovered/Resolved]
  - Palmar-plantar erythrodysaesthesia syndrome [Recovered/Resolved]
